FAERS Safety Report 16030512 (Version 1)
Quarter: 2019Q1

REPORT INFORMATION
  Report Type: Spontaneous
  Country: US (occurrence: US)
  Receive Date: 20190304
  Receipt Date: 20190304
  Transmission Date: 20190418
  Serious: No
  Sender: FDA-Public Use
  Company Number: US-B. BRAUN MEDICAL INC.-2063512

PATIENT
  Age: 36 Year
  Sex: Female

DRUGS (1)
  1. CEFAZOLIN FOR INJECTION USP AND DEXTROSE INJECTION USP 0264-3103-11 (N [Suspect]
     Active Substance: CEFAZOLIN
     Route: 042

REACTIONS (3)
  - Urticaria [None]
  - Hypersensitivity [None]
  - Injection site erythema [None]
